FAERS Safety Report 14715433 (Version 1)
Quarter: 2018Q2

REPORT INFORMATION
  Report Type: Spontaneous
  Country: ES (occurrence: ES)
  Receive Date: 20180404
  Receipt Date: 20180404
  Transmission Date: 20180711
  Serious: Yes (Hospitalization, Other)
  Sender: FDA-Public Use
  Company Number: ES-INDIVIOR LIMITED-INDV-109878-2018

PATIENT
  Age: 50 Year
  Sex: Male

DRUGS (13)
  1. ESCITALOPRAM [Concomitant]
     Active Substance: ESCITALOPRAM OXALATE
     Indication: PRODUCT USED FOR UNKNOWN INDICATION
     Dosage: 22.5 MG/DAY
     Route: 065
  2. COCAINE [Suspect]
     Active Substance: COCAINE
     Indication: PRODUCT USED FOR UNKNOWN INDICATION
     Dosage: UNK
     Route: 051
  3. DIPOTASSIUM CLORAZEPATE [Concomitant]
     Active Substance: CLORAZEPATE DIPOTASSIUM
     Indication: INSOMNIA
     Dosage: 5MG, UNK
     Route: 065
  4. QUETIAPINE. [Concomitant]
     Active Substance: QUETIAPINE
     Indication: PRODUCT USED FOR UNKNOWN INDICATION
     Dosage: 25 MG, TID
     Route: 065
  5. CLOTIAPINE [Concomitant]
     Active Substance: CLOTHIAPINE
     Indication: INSOMNIA
     Dosage: UNKNOWN
     Route: 065
  6. BUPRENORPHINE/NALOXONE BRAND UNSPECIFIED [Suspect]
     Active Substance: BUPRENORPHINE\NALOXONE
     Dosage: 20/5 MG, UNK
     Route: 065
  7. BUPRENORPHINE/NALOXONE BRAND UNSPECIFIED [Suspect]
     Active Substance: BUPRENORPHINE\NALOXONE
     Dosage: DOSE REDUCED TO 6/1.5MG,UNK
     Route: 065
  8. HEROIN [Suspect]
     Active Substance: DIAMORPHINE
     Indication: PRODUCT USED FOR UNKNOWN INDICATION
     Dosage: UNK
     Route: 051
  9. GABAPENTIN. [Concomitant]
     Active Substance: GABAPENTIN
     Indication: PRODUCT USED FOR UNKNOWN INDICATION
     Dosage: 100 MG, TID
     Route: 065
  10. BUPRENORPHINE/NALOXONE BRAND UNSPECIFIED [Suspect]
     Active Substance: BUPRENORPHINE\NALOXONE
     Indication: PRODUCT USED FOR UNKNOWN INDICATION
     Dosage: UNK
     Route: 065
  11. TRAZODONE [Concomitant]
     Active Substance: TRAZODONE HYDROCHLORIDE
     Indication: PRODUCT USED FOR UNKNOWN INDICATION
     Dosage: 10 MG, ONCE AT NIGHT
     Route: 065
  12. BUPRENORPHINE/NALOXONE BRAND UNSPECIFIED [Suspect]
     Active Substance: BUPRENORPHINE\NALOXONE
     Dosage: DOSE ADJUSTED TO 10/2.5 MG,UNK
     Route: 065
  13. VENLAFAXINE [Concomitant]
     Active Substance: VENLAFAXINE HYDROCHLORIDE
     Indication: PRODUCT USED FOR UNKNOWN INDICATION
     Dosage: 75MG, ONCE IN MORNING
     Route: 065

REACTIONS (14)
  - Feeling of despair [Unknown]
  - Disorientation [Unknown]
  - Sedation [Unknown]
  - Drug abuse [Unknown]
  - Dysarthria [Unknown]
  - Decreased appetite [Unknown]
  - Somnolence [Unknown]
  - Aggression [Unknown]
  - Suicidal ideation [Unknown]
  - Emotional disorder [Unknown]
  - Psychotic behaviour [Unknown]
  - Apathy [Unknown]
  - Abnormal behaviour [Unknown]
  - Insomnia [Unknown]
